FAERS Safety Report 6055825-6 (Version None)
Quarter: 2009Q1

REPORT INFORMATION
  Report Type: 
  Country: None (occurrence: None)
  Receive Date: 20090128
  Receipt Date: 20090119
  Transmission Date: 20090719
  Serious: Yes (Hospitalization)
  Sender: FDA-Public Use
  Company Number: US-ABBOTT-09P-163-0498584-00

PATIENT
  Sex: Female
  Weight: 55.842 kg

DRUGS (22)
  1. NIASPAN [Suspect]
     Indication: BLOOD TRIGLYCERIDES INCREASED
     Route: 048
     Dates: start: 20060101, end: 20070101
  2. NIASPAN [Suspect]
     Dates: start: 20090112
  3. DIGOXIN [Concomitant]
     Indication: CARDIAC PACEMAKER INSERTION
  4. DIGOXIN [Concomitant]
     Indication: IMPLANTABLE DEFIBRILLATOR INSERTION
  5. METOLAZONE [Concomitant]
     Indication: DIURETIC THERAPY
     Route: 048
  6. SYNTHROID [Concomitant]
     Indication: AUTOIMMUNE THYROIDITIS
     Route: 048
  7. FISH OIL [Concomitant]
     Indication: BLOOD TRIGLYCERIDES
     Route: 048
  8. GLYBURIDE [Concomitant]
     Indication: DIABETES MELLITUS
     Route: 048
  9. SERTRALINE [Concomitant]
     Indication: DEPRESSION
     Route: 048
  10. CARVEDILOL [Concomitant]
     Indication: HYPERTENSION
     Route: 048
  11. SPIRONOLACTONE [Concomitant]
     Indication: HYPERTENSION
     Route: 048
  12. OMEPRAZOLE [Concomitant]
     Indication: ULCER
     Route: 048
  13. OMEPRAZOLE [Concomitant]
     Indication: PANCREATIC DISORDER
  14. FOLIC ACID [Concomitant]
     Indication: VITAMIN SUPPLEMENTATION
     Route: 048
  15. OS-CAL + D [Concomitant]
     Indication: MINERAL SUPPLEMENTATION
     Route: 048
  16. COZAAR [Concomitant]
     Indication: HYPERTENSION
     Route: 048
  17. TRICOR [Concomitant]
     Indication: BLOOD CHOLESTEROL
     Route: 048
  18. TRICOR [Concomitant]
     Indication: BLOOD TRIGLYCERIDES
  19. FUROSEMIDE [Concomitant]
     Indication: DIURETIC THERAPY
     Route: 048
  20. PRESURVISION [Concomitant]
     Indication: VITAMIN SUPPLEMENTATION
     Route: 048
  21. ALPHA-BETIC [Concomitant]
     Indication: DIABETES MELLITUS
     Route: 048
  22. LANTUS [Concomitant]
     Indication: DIABETES MELLITUS
     Route: 058

REACTIONS (3)
  - CARDIAC FAILURE [None]
  - DIARRHOEA [None]
  - FLUSHING [None]
